FAERS Safety Report 25970460 (Version 1)
Quarter: 2025Q4

REPORT INFORMATION
  Report Type: Spontaneous
  Country: US (occurrence: US)
  Receive Date: 20251028
  Receipt Date: 20251028
  Transmission Date: 20260118
  Serious: No
  Sender: ABBVIE
  Company Number: US-ABBVIE-6521931

PATIENT
  Age: 51 Year
  Sex: Male

DRUGS (1)
  1. DALVANCE [Suspect]
     Active Substance: DALBAVANCIN HYDROCHLORIDE
     Indication: Cellulitis
     Route: 042
     Dates: start: 20251024, end: 20251024

REACTIONS (4)
  - Upper respiratory tract infection [Recovered/Resolved]
  - Increased upper airway secretion [Recovered/Resolved]
  - Throat irritation [Recovered/Resolved]
  - Cough [Recovered/Resolved]

NARRATIVE: CASE EVENT DATE: 20250101
